FAERS Safety Report 14293941 (Version 1)
Quarter: 2017Q4

REPORT INFORMATION
  Report Type: Spontaneous
  Country: TR (occurrence: TR)
  Receive Date: 20171216
  Receipt Date: 20171216
  Transmission Date: 20180321
  Serious: Yes (Hospitalization, Other)
  Sender: FDA-Public Use
  Company Number: TR-009507513-1712TUR006201

PATIENT
  Age: 14 Year
  Sex: Female

DRUGS (2)
  1. NOXAFIL [Suspect]
     Active Substance: POSACONAZOLE
     Indication: PROPHYLAXIS
     Dosage: UNK
     Route: 048
  2. VINCRISTINE [Interacting]
     Active Substance: VINCRISTINE
     Indication: B PRECURSOR TYPE ACUTE LEUKAEMIA
     Dosage: UNK

REACTIONS (14)
  - Drug interaction [Unknown]
  - Muscular weakness [Recovered/Resolved]
  - Myalgia [Recovered/Resolved]
  - Autonomic neuropathy [Recovered/Resolved]
  - Ileus paralytic [Recovered/Resolved]
  - Hyperhidrosis [Recovered/Resolved]
  - Fatigue [Recovered/Resolved]
  - Toxicity to various agents [Unknown]
  - Gait disturbance [Recovered/Resolved]
  - Urinary tract disorder [Unknown]
  - Renal tubular disorder [Recovered/Resolved]
  - Neuralgia [Recovered/Resolved]
  - Bone pain [Recovered/Resolved]
  - Febrile neutropenia [Recovered/Resolved]
